FAERS Safety Report 25743899 (Version 1)
Quarter: 2025Q3

REPORT INFORMATION
  Report Type: Report from Study
  Country: GB (occurrence: GB)
  Receive Date: 20250831
  Receipt Date: 20250831
  Transmission Date: 20251021
  Serious: Yes (Other)
  Sender: ABBVIE
  Company Number: GB-ABBVIE-6436094

PATIENT
  Sex: Male

DRUGS (1)
  1. SKYRIZI [Suspect]
     Active Substance: RISANKIZUMAB-RZAA
     Indication: Psoriasis
     Route: 058

REACTIONS (5)
  - Joint dislocation [Unknown]
  - Limb injury [Unknown]
  - Tendon rupture [Unknown]
  - Fall [Unknown]
  - Skeletal injury [Unknown]
